FAERS Safety Report 8791924 (Version 1)
Quarter: 2012Q4

REPORT INFORMATION
  Report Type: 
  Country: GB (occurrence: GB)
  Receive Date: 20120918
  Receipt Date: 20120918
  Transmission Date: 20130627
  Serious: Yes (Hospitalization)
  Sender: FDA-Public Use
  Company Number: GB-PFIZER INC-2012226563

PATIENT
  Age: 74 Year
  Sex: Female
  Weight: 90.4 kg

DRUGS (11)
  1. GENOTROPIN [Suspect]
     Indication: GROWTH HORMONE DEFICIENCY
     Dosage: 0.5 mg/day, 7 injections/week
     Dates: start: 20051214
  2. DESMOSPRAY [Concomitant]
     Indication: BLOOD ANTIDIURETIC HORMONE DECREASED
     Dosage: UNK
     Dates: start: 20020522
  3. TIBOLONE [Concomitant]
     Indication: BLOOD LUTEINISING HORMONE DECREASED
     Dosage: UNK
     Dates: start: 20020522
  4. TIBOLONE [Concomitant]
     Indication: BLOOD FOLLICLE STIMULATING HORMONE DECREASED
  5. TIBOLONE [Concomitant]
     Indication: HYPOGONADISM FEMALE
  6. HYDROCORTISONE [Concomitant]
     Indication: BLOOD CORTICOTROPHIN DECREASED
     Dosage: UNK
     Dates: start: 20020522
  7. LEVOTHYROXINE [Concomitant]
     Indication: BLOOD THYROID STIMULATING HORMONE DECREASED
     Dosage: UNK
     Dates: start: 20020522
  8. LEVOTHYROXINE [Concomitant]
     Indication: PRIMARY HYPOTHYROIDISM
  9. CLOPIDOGREL [Concomitant]
     Indication: ARTERIOSCLEROSIS
     Dosage: UNK
     Dates: start: 2007
  10. CLOPIDOGREL [Concomitant]
     Indication: ARTERIAL DISORDER
  11. CANDESARTAN [Concomitant]
     Indication: ESSENTIAL HYPERTENSION
     Dosage: UNK
     Dates: start: 200606

REACTIONS (3)
  - Carpal tunnel syndrome [Unknown]
  - Infection [Unknown]
  - Arthropathy [Unknown]
